FAERS Safety Report 16757234 (Version 2)
Quarter: 2019Q4

REPORT INFORMATION
  Report Type: Spontaneous
  Country: DE (occurrence: DE)
  Receive Date: 20190829
  Receipt Date: 20191001
  Transmission Date: 20200122
  Serious: Yes (Other)
  Sender: FDA-Public Use
  Company Number: DE-TEVA-2019-DE-1099644

PATIENT
  Age: 50 Year
  Sex: Female
  Weight: 72 kg

DRUGS (1)
  1. TELMISARTAN. [Suspect]
     Active Substance: TELMISARTAN
     Indication: ESSENTIAL HYPERTENSION
     Dosage: 40 MG TO 80 MG DAILY
     Route: 048
     Dates: start: 20061001, end: 20180915

REACTIONS (3)
  - Bradycardia [Recovered/Resolved]
  - Atrial fibrillation [Recovered/Resolved]
  - Arrhythmia [Recovered/Resolved]

NARRATIVE: CASE EVENT DATE: 20150402
